FAERS Safety Report 5400368-3 (Version None)
Quarter: 2007Q3

REPORT INFORMATION
  Report Type: 
  Country: None (occurrence: None)
  Receive Date: 20070730
  Receipt Date: 20070619
  Transmission Date: 20080115
  Serious: Yes (Hospitalization, Disabling)
  Sender: FDA-Public Use
  Company Number: B0473205A

PATIENT
  Age: 51 Year
  Sex: Female

DRUGS (5)
  1. AMOXICILLIN TRIHYDRATE [Suspect]
     Dosage: 700MG TWICE PER DAY
     Route: 048
     Dates: start: 20070410
  2. OMEPRAZOLE [Suspect]
     Dosage: 20MG TWICE PER DAY
     Route: 048
     Dates: start: 20070410, end: 20070413
  3. CLARITHROMYCIN [Suspect]
     Dosage: 400MG TWICE PER DAY
     Route: 048
     Dates: start: 20070410, end: 20070413
  4. ALLOPURINOL [Concomitant]
     Dosage: 100MG THREE TIMES PER DAY
     Route: 048
  5. FERROMIA [Concomitant]
     Dosage: 50MG TWICE PER DAY
     Route: 048

REACTIONS (1)
  - WHITE BLOOD CELL COUNT DECREASED [None]
